FAERS Safety Report 10735126 (Version 1)
Quarter: 2015Q1

REPORT INFORMATION
  Report Type: Spontaneous
  Country: US (occurrence: US)
  Receive Date: 20150125
  Receipt Date: 20150125
  Transmission Date: 20150721
  Serious: No
  Sender: FDA-Public Use
  Company Number: US-ASTRAZENECA-2015SE04615

PATIENT
  Age: 48 Year
  Sex: Male

DRUGS (4)
  1. SYMBICORT [Suspect]
     Active Substance: BUDESONIDE\FORMOTEROL FUMARATE DIHYDRATE
     Indication: ASTHMA
     Dosage: 160-4.5 MCG,TWO INHALATIONS TWO TIMES A DAY
     Route: 055
  2. UNSPECIFIED ACE INHIBITOR [Concomitant]
  3. UNSPECIFIED STATIN [Concomitant]
  4. SYMBICORT [Suspect]
     Active Substance: BUDESONIDE\FORMOTEROL FUMARATE DIHYDRATE
     Indication: ASTHMA
     Dosage: PRN RESCUE INHALER
     Route: 055

REACTIONS (3)
  - Intentional product misuse [Recovered/Resolved]
  - General symptom [Unknown]
  - Diabetes mellitus [Not Recovered/Not Resolved]
